FAERS Safety Report 5835561-9 (Version None)
Quarter: 2008Q3

REPORT INFORMATION
  Report Type: 
  Country: None (occurrence: None)
  Receive Date: 20080806
  Receipt Date: 20080725
  Transmission Date: 20090109
  Serious: Yes (Other)
  Sender: FDA-Public Use
  Company Number: B0531274A

PATIENT
  Age: 60 Year
  Sex: Female
  Weight: 67 kg

DRUGS (2)
  1. TYVERB [Suspect]
     Dosage: 1250MG PER DAY
     Route: 048
     Dates: start: 20080115, end: 20080602
  2. XELODA [Suspect]
     Dosage: 3500MG PER DAY
     Route: 048
     Dates: start: 20080115, end: 20080602

REACTIONS (2)
  - SKIN CHAPPED [None]
  - SKIN TOXICITY [None]
